FAERS Safety Report 6599901-8 (Version None)
Quarter: 2010Q1

REPORT INFORMATION
  Report Type: 
  Country: None (occurrence: None)
  Receive Date: 20100224
  Receipt Date: 20100217
  Transmission Date: 20100710
  Serious: Yes (Other)
  Sender: FDA-Public Use
  Company Number: US-RB-018721-09

PATIENT
  Sex: Male

DRUGS (1)
  1. SUBOXONE [Suspect]
     Indication: DRUG USE FOR UNKNOWN INDICATION
     Dosage: UNKNOWN DOSE
     Route: 065

REACTIONS (7)
  - AMNESIA [None]
  - CONVULSION [None]
  - DRUG DEPENDENCE [None]
  - FALL [None]
  - HAEMORRHAGE [None]
  - HYPOAESTHESIA [None]
  - INSOMNIA [None]
